FAERS Safety Report 4659599-2 (Version None)
Quarter: 2005Q2

REPORT INFORMATION
  Report Type: 
  Country: None (occurrence: None)
  Receive Date: 20050510
  Receipt Date: 20050427
  Transmission Date: 20051028
  Serious: Yes (Death)
  Sender: FDA-Public Use
  Company Number: 2005067426

PATIENT
  Age: 54 Year
  Sex: Male

DRUGS (3)
  1. CABERGOLINE [Suspect]
     Indication: PARKINSON'S DISEASE
     Dates: start: 20000901
  2. SINEMET [Concomitant]
  3. ENTACAPONE (ENTACAPONE) [Concomitant]

REACTIONS (2)
  - CORONARY ARTERY INSUFFICIENCY [None]
  - FALL [None]
